FAERS Safety Report 6159025-0 (Version None)
Quarter: 2009Q2

REPORT INFORMATION
  Report Type: 
  Country: None (occurrence: None)
  Receive Date: 20090417
  Receipt Date: 20090408
  Transmission Date: 20091009
  Serious: Yes (Other)
  Sender: FDA-Public Use
  Company Number: US-PFIZER INC-2009182448

PATIENT
  Sex: Male

DRUGS (3)
  1. LIPITOR [Suspect]
     Dosage: 10 MG, 1X/DAY
     Dates: start: 20080101
  2. FENTANYL CITRATE [Interacting]
     Dosage: UNK
     Dates: start: 20090309
  3. BIAXIN [Interacting]
     Dosage: UNK
     Dates: start: 20090309

REACTIONS (3)
  - CONVULSION [None]
  - DRUG INTERACTION [None]
  - VOMITING [None]
